FAERS Safety Report 20777782 (Version 2)
Quarter: 2022Q3

REPORT INFORMATION
  Report Type: Report from Study
  Country: US (occurrence: US)
  Receive Date: 20220503
  Receipt Date: 20220720
  Transmission Date: 20221027
  Serious: Yes (Other)
  Sender: FDA-Public Use
  Company Number: US-BAYER-2022A059690

PATIENT
  Age: 36 Year
  Sex: Female
  Weight: 50.794 kg

DRUGS (2)
  1. GADOBUTROL [Suspect]
     Active Substance: GADOBUTROL
     Indication: Acoustic neuroma
     Dosage: UNK UNK, ONCE
  2. DULOXETINE [Concomitant]
     Active Substance: DULOXETINE

REACTIONS (4)
  - Gadolinium deposition disease [None]
  - Mitochondrial toxicity [None]
  - Nontherapeutic agent urine positive [None]
  - Cytokine increased [None]
